FAERS Safety Report 4439122-8 (Version None)
Quarter: 2004Q3

REPORT INFORMATION
  Report Type: 
  Country: None (occurrence: None)
  Receive Date: 20040831
  Receipt Date: 20040604
  Transmission Date: 20050211
  Serious: Yes (Hospitalization)
  Sender: FDA-Public Use
  Company Number: A02200401819

PATIENT
  Age: 73 Year
  Sex: Female

DRUGS (13)
  1. MEPROBAMATE [Suspect]
     Route: 048
     Dates: end: 20040502
  2. STILNOX - (ZOLPIDEM) - TABLET - 10 MG [Suspect]
     Route: 048
     Dates: end: 20040502
  3. OMEPRAZOLE [Suspect]
     Route: 048
     Dates: end: 20040502
  4. ZOCOR [Suspect]
     Route: 048
     Dates: end: 20040502
  5. SERETIDE ^GLAXO WELLCOME^ - (FLUTICASONE/SALMETEROL) - UNKNOWN - UNIT [Suspect]
     Route: 055
     Dates: end: 20040502
  6. FOSAMAX [Suspect]
     Route: 048
     Dates: end: 20040502
  7. COZAAR [Suspect]
     Route: 048
     Dates: end: 20040502
  8. RENNIE - (CALCIUM AND MAGNESIUM CARBONATE) - TABLET - UNIT DOSE : UNKN [Suspect]
     Route: 048
     Dates: end: 20040502
  9. SERC - (BETAHISTINE HYDROCHLORIDE) - TABLET - 8 MG [Suspect]
     Route: 048
     Dates: end: 20040502
  10. OROCAL - (CALCIUM CARBONATE) - TABLET - UNIT DOSE : UNKNOWN [Suspect]
     Route: 048
     Dates: end: 20040502
  11. BRONCHODUAL - (FENOTEROL/IPRATROPIUM BROMURE) - UNKNOWN- UNIT DOSE : U [Suspect]
     Route: 055
     Dates: end: 20040502
  12. LEXOMIL - (BROMAZEPAM) TABLET- 6 MG [Suspect]
     Route: 048
     Dates: end: 20040502
  13. CODOLIPRANE - (PARACETAMOL/CODEINE) - TABLET - 420 MG [Suspect]
     Route: 048
     Dates: end: 20040502

REACTIONS (9)
  - ACUTE RESPIRATORY DISTRESS SYNDROME [None]
  - COMA [None]
  - CONFUSIONAL STATE [None]
  - DIARRHOEA [None]
  - HYPONATRAEMIA [None]
  - METABOLIC ACIDOSIS [None]
  - RENAL FAILURE ACUTE [None]
  - RHABDOMYOLYSIS [None]
  - SEPTIC SHOCK [None]
